FAERS Safety Report 11714394 (Version 1)
Quarter: 2015Q4

REPORT INFORMATION
  Report Type: Spontaneous
  Country: US (occurrence: None)
  Receive Date: 20151106
  Receipt Date: 20151106
  Transmission Date: 20160304
  Serious: Yes (Other)
  Sender: FDA-Public Use
  Company Number: None

PATIENT
  Age: 53 Year
  Sex: Male
  Weight: 93.9 kg

DRUGS (2)
  1. ALPRAZOLAM GREENSTONE .05MG [Suspect]
     Active Substance: ALPRAZOLAM
     Indication: PANIC DISORDER
     Dosage: 1-2 TID
     Route: 048
     Dates: start: 20150521
  2. ALPRAZOLAM MYLAN 1MG [Suspect]
     Active Substance: ALPRAZOLAM
     Route: 048

REACTIONS (2)
  - Panic attack [None]
  - Condition aggravated [None]
